FAERS Safety Report 20377211 (Version 1)
Quarter: 2022Q1

REPORT INFORMATION
  Report Type: Spontaneous
  Country: DE (occurrence: DE)
  Receive Date: 20220126
  Receipt Date: 20220126
  Transmission Date: 20220423
  Serious: Yes (Other)
  Sender: FDA-Public Use
  Company Number: None

PATIENT
  Age: 47 Year
  Sex: Female
  Weight: 46 kg

DRUGS (1)
  1. AIMOVIG [Suspect]
     Active Substance: ERENUMAB-AOOE
     Indication: Migraine
     Dosage: 70 MILLIGRAM
     Route: 058
     Dates: start: 20210214, end: 20210509

REACTIONS (4)
  - Dyspnoea [Unknown]
  - Fatigue [Unknown]
  - Hypoaesthesia [Unknown]
  - Alopecia [Unknown]

NARRATIVE: CASE EVENT DATE: 20210425
